FAERS Safety Report 9710984 (Version 2)
Quarter: 2013Q4

REPORT INFORMATION
  Report Type: Spontaneous
  Country: US (occurrence: US)
  Receive Date: 20131126
  Receipt Date: 20131126
  Transmission Date: 20140711
  Serious: Yes (Other)
  Sender: FDA-Public Use
  Company Number: US-BRISTOL-MYERS SQUIBB COMPANY-19095538

PATIENT
  Age: 6 Decade
  Sex: Male

DRUGS (12)
  1. BYDUREON [Suspect]
     Indication: TYPE 2 DIABETES MELLITUS
     Dosage: NO OF DOSES:4
     Route: 058
     Dates: start: 20130612
  2. BYETTA [Suspect]
     Dates: start: 2013
  3. ACTOS [Concomitant]
  4. ACETYLSALICYLIC ACID [Concomitant]
  5. FLOMAX [Concomitant]
  6. LIPITOR [Concomitant]
  7. LOSARTAN [Concomitant]
  8. METFORMIN [Concomitant]
  9. MICRO-K [Concomitant]
  10. PEPCID [Concomitant]
  11. MULTIVITAMIN [Concomitant]
  12. SINGULAIR [Concomitant]

REACTIONS (2)
  - Rash maculo-papular [Recovered/Resolved]
  - Blood glucose increased [Unknown]
